FAERS Safety Report 18841608 (Version 2)
Quarter: 2021Q1

REPORT INFORMATION
  Report Type: Spontaneous
  Country: JP (occurrence: JP)
  Receive Date: 20210203
  Receipt Date: 20210312
  Transmission Date: 20210419
  Serious: Yes (Death, Hospitalization, Other)
  Sender: FDA-Public Use
  Company Number: JP-ROCHE-2762521

PATIENT
  Age: 69 Year
  Sex: Male
  Weight: 56 kg

DRUGS (9)
  1. AVASTIN [Suspect]
     Active Substance: BEVACIZUMAB
     Indication: HEPATOCELLULAR CARCINOMA
     Dosage: DOSAGE IS UNCERTAIN.
     Route: 041
     Dates: start: 20201005, end: 20201221
  2. FLUOROURACIL. [Concomitant]
     Active Substance: FLUOROURACIL
     Indication: HEPATOCELLULAR CARCINOMA
     Dosage: DOSAGE IS UNCERTAIN.
     Route: 065
     Dates: start: 20200720, end: 20201018
  3. TECENTRIQ [Suspect]
     Active Substance: ATEZOLIZUMAB
     Indication: HEPATOCELLULAR CARCINOMA
     Route: 041
     Dates: start: 20201005, end: 20201221
  4. LEXAPRO [Concomitant]
     Active Substance: ESCITALOPRAM OXALATE
     Dosage: DOSAGE IS UNCERTAIN.
     Route: 065
     Dates: start: 20200918, end: 20210131
  5. MEILAX [Concomitant]
     Active Substance: ETHYL LOFLAZEPATE
     Dosage: DOSAGE IS UNCERTAIN.
     Route: 065
     Dates: start: 20200918, end: 20210131
  6. LOPEMIN [Concomitant]
     Dosage: DOSE INTERVAL UNCERTAINTY
     Route: 065
     Dates: start: 20201221
  7. CISPLATIN. [Concomitant]
     Active Substance: CISPLATIN
     Indication: HEPATOCELLULAR CARCINOMA
     Dosage: DOSAGE IS UNCERTAIN.
     Route: 041
     Dates: start: 20200720, end: 20201018
  8. GEMCITABINE HYDROCHLORIDE. [Concomitant]
     Active Substance: GEMCITABINE HYDROCHLORIDE
     Indication: HEPATOCELLULAR CARCINOMA
     Dosage: DOSAGE IS UNCERTAIN.
     Route: 041
     Dates: start: 20200720, end: 20201018
  9. LOPEMIN [Concomitant]
     Dosage: DOSE INTERVAL UNCERTAINTY
     Route: 065
     Dates: end: 20210131

REACTIONS (6)
  - Sepsis [Fatal]
  - Colitis ulcerative [Fatal]
  - Bacterial translocation [Unknown]
  - Multiple organ dysfunction syndrome [Fatal]
  - Hypothyroidism [Unknown]
  - Disseminated intravascular coagulation [Unknown]

NARRATIVE: CASE EVENT DATE: 20201221
